FAERS Safety Report 7939466-9 (Version None)
Quarter: 2011Q4

REPORT INFORMATION
  Report Type: 
  Country: None (occurrence: None)
  Receive Date: 20111125
  Receipt Date: 20111116
  Transmission Date: 20120403
  Serious: Yes (Other)
  Sender: FDA-Public Use
  Company Number: CA-ROCHE-1014207

PATIENT
  Sex: Male
  Weight: 94.886 kg

DRUGS (4)
  1. AVASTIN [Suspect]
     Indication: GLIOBLASTOMA
     Route: 042
     Dates: start: 20111102
  2. PROCHLORPERAZINE [Concomitant]
  3. DECADRON [Concomitant]
  4. PANTOPRAZOLE [Concomitant]

REACTIONS (1)
  - DIABETES MELLITUS [None]
